FAERS Safety Report 20486583 (Version 1)
Quarter: 2022Q1

REPORT INFORMATION
  Report Type: Spontaneous
  Country: US (occurrence: None)
  Receive Date: 20220217
  Receipt Date: 20220217
  Transmission Date: 20220424
  Serious: Yes (Death)
  Sender: FDA-Public Use
  Company Number: None

PATIENT
  Age: 71 Year
  Sex: Female
  Weight: 70.9 kg

DRUGS (4)
  1. ENOXAPARIN [Suspect]
     Active Substance: ENOXAPARIN
     Indication: Illness
     Dosage: FREQUENCY : TWICE A DAY;?
     Route: 058
     Dates: start: 20220116, end: 20220122
  2. ENOXAPARIN [Suspect]
     Active Substance: ENOXAPARIN
     Indication: Dependence on oxygen therapy
  3. ENOXAPARIN [Suspect]
     Active Substance: ENOXAPARIN
     Indication: SARS-CoV-2 test positive
  4. ASPIRIN [Concomitant]
     Active Substance: ASPIRIN
     Dates: start: 20220113, end: 20220123

REACTIONS (6)
  - Pulseless electrical activity [None]
  - COVID-19 [None]
  - Illness [None]
  - Dependence on oxygen therapy [None]
  - Cardiac arrest [None]
  - Retroperitoneal haematoma [None]

NARRATIVE: CASE EVENT DATE: 20220123
